FAERS Safety Report 6982620-3 (Version None)
Quarter: 2010Q3

REPORT INFORMATION
  Report Type: 
  Country: None (occurrence: None)
  Receive Date: 20100914
  Receipt Date: 20100223
  Transmission Date: 20110219
  Serious: Yes (Other)
  Sender: FDA-Public Use
  Company Number: US-PFIZER INC-2010026152

PATIENT
  Sex: Female
  Weight: 79.378 kg

DRUGS (11)
  1. LYRICA [Suspect]
     Indication: BACK PAIN
     Dosage: 100 MG, 2X/DAY
     Dates: start: 20091201
  2. LYRICA [Suspect]
     Indication: PAIN IN EXTREMITY
  3. ALCOHOL [Suspect]
     Dosage: UNK
  4. FLEXERIL [Concomitant]
     Indication: MUSCLE RELAXANT THERAPY
     Dosage: 3 DAILY
  5. DARVOCET [Concomitant]
     Dosage: 2-3 TIMES DAILY
  6. PREMARIN [Concomitant]
     Dosage: UNK
  7. CELEXA [Concomitant]
     Indication: DEPRESSION
     Dosage: UNK
  8. CELEXA [Concomitant]
     Indication: ANXIETY
  9. SOMA [Concomitant]
     Indication: MUSCLE RELAXANT THERAPY
     Dosage: 1-2 DAILY
  10. PERCOCET [Concomitant]
     Indication: PAIN
     Dosage: 4 DAILY
  11. XANAX [Concomitant]
     Dosage: 1MG (2 DAILY)

REACTIONS (10)
  - CONFUSIONAL STATE [None]
  - FEELING DRUNK [None]
  - HANGOVER [None]
  - IMPAIRED DRIVING ABILITY [None]
  - MEMORY IMPAIRMENT [None]
  - MUSCLE SPASMS [None]
  - OEDEMA PERIPHERAL [None]
  - PAIN IN EXTREMITY [None]
  - SOMNOLENCE [None]
  - VISION BLURRED [None]
